FAERS Safety Report 9417641 (Version 1)
Quarter: 2013Q3

REPORT INFORMATION
  Report Type: Spontaneous
  Country: US (occurrence: US)
  Receive Date: 20130724
  Receipt Date: 20130724
  Transmission Date: 20140515
  Serious: Yes (Other)
  Sender: FDA-Public Use
  Company Number: US-JNJFOC-20120206033

PATIENT
  Age: 65 Year
  Sex: Male
  Weight: 60.33 kg

DRUGS (8)
  1. REMICADE [Suspect]
     Indication: COLITIS ULCERATIVE
     Dosage: SECOND INFUSION
     Route: 042
     Dates: start: 20120127
  2. REMICADE [Suspect]
     Indication: COLITIS ULCERATIVE
     Route: 042
     Dates: start: 20120112
  3. REMICADE [Suspect]
     Indication: COLITIS ULCERATIVE
     Route: 042
     Dates: start: 2011
  4. BENADRYL [Concomitant]
     Indication: PREMEDICATION
     Dosage: 1 IVX1 DOSE
     Route: 042
  5. APRISO [Concomitant]
     Indication: COLITIS ULCERATIVE
     Route: 065
  6. MERCAPTOPURIN [Concomitant]
     Indication: COLITIS ULCERATIVE
     Route: 065
  7. OMEPRAZOLE [Concomitant]
     Indication: GASTROOESOPHAGEAL REFLUX DISEASE
     Route: 065
  8. TYLENOL [Concomitant]
     Indication: PREMEDICATION
     Dosage: EVERY INFUSION
     Route: 048

REACTIONS (3)
  - Dyspnoea [Recovered/Resolved]
  - Infusion related reaction [Recovered/Resolved]
  - Hypotension [Recovered/Resolved]
